FAERS Safety Report 6179771-2 (Version None)
Quarter: 2009Q2

REPORT INFORMATION
  Report Type: 
  Country: None (occurrence: None)
  Receive Date: 20090505
  Receipt Date: 20090423
  Transmission Date: 20091009
  Serious: Yes (Life-Threatening, Hospitalization)
  Sender: FDA-Public Use
  Company Number: ES-PFIZER INC-2009202083

PATIENT

DRUGS (6)
  1. NEURONTIN [Suspect]
     Indication: EPILEPSY
     Dosage: 300 MG, UNK
     Route: 048
     Dates: start: 19900101, end: 20081120
  2. PHENYTOIN AND PHENYTOIN SODIUM [Interacting]
     Dosage: UNK
     Route: 048
     Dates: start: 19900101, end: 20081120
  3. PROZAC [Interacting]
     Indication: DEPRESSION
     Dosage: 20 MG, 1X/DAY
     Route: 048
     Dates: end: 20081120
  4. REXER [Interacting]
     Indication: DEPRESSION
     Dosage: 30 MG, 2X/DAY
     Route: 048
     Dates: end: 20081120
  5. RIVOTRIL [Interacting]
     Indication: EPILEPSY
     Dosage: 2 MG, UNK
     Route: 048
     Dates: start: 19900101, end: 20081120
  6. TRANXILIUM [Interacting]
     Indication: ADJUSTMENT DISORDER WITH MIXED ANXIETY AND DEPRESSED MOOD
     Dosage: 50 MG, 1X/DAY
     Route: 048
     Dates: end: 20081120

REACTIONS (2)
  - DRUG INTERACTION [None]
  - SUICIDE ATTEMPT [None]
